FAERS Safety Report 6923146-2 (Version None)
Quarter: 2010Q3

REPORT INFORMATION
  Report Type: 
  Country: None (occurrence: None)
  Receive Date: 20100813
  Receipt Date: 20100721
  Transmission Date: 20110219
  Serious: Yes (Other)
  Sender: FDA-Public Use
  Company Number: SE-ROCHE-690477

PATIENT
  Sex: Female

DRUGS (3)
  1. TOCILIZUMAB [Suspect]
     Indication: RHEUMATOID ARTHRITIS
     Dosage: DOSE: 680MG3.
     Route: 042
     Dates: start: 20091028, end: 20091222
  2. METHOTREXATE [Concomitant]
  3. PREDNISOLONE [Concomitant]

REACTIONS (3)
  - AMNESIA [None]
  - ENCEPHALOPATHY [None]
  - NERVOUS SYSTEM NEOPLASM BENIGN [None]
